FAERS Safety Report 8524663-4 (Version None)
Quarter: 2012Q3

REPORT INFORMATION
  Report Type: 
  Country: None (occurrence: None)
  Receive Date: 20120720
  Receipt Date: 20120706
  Transmission Date: 20120928
  Serious: Yes (Hospitalization)
  Sender: FDA-Public Use
  Company Number: GB-MYLANLABS-2012S1013797

PATIENT
  Age: 87 Year
  Sex: Male

DRUGS (5)
  1. CITALOPRAM HYDROBROMIDE [Suspect]
     Route: 048
     Dates: start: 20110901
  2. CITALOPRAM HYDROBROMIDE [Suspect]
     Route: 048
  3. CITALOPRAM HYDROBROMIDE [Suspect]
     Route: 048
     Dates: start: 20120601
  4. CITALOPRAM HYDROBROMIDE [Suspect]
     Indication: PRODUCT USED FOR UNKNOWN INDICATION
     Route: 048
     Dates: start: 20100801
  5. CITALOPRAM HYDROBROMIDE [Suspect]
     Route: 048
     Dates: end: 20120601

REACTIONS (2)
  - FALL [None]
  - OVERDOSE [None]
